FAERS Safety Report 24712232 (Version 6)
Quarter: 2025Q1

REPORT INFORMATION
  Report Type: Report from Study
  Country: JP (occurrence: JP)
  Receive Date: 20241209
  Receipt Date: 20250227
  Transmission Date: 20250408
  Serious: Yes (Other)
  Sender: EISAI
  Company Number: JP-Eisai-202411628_LEQ_P_1

PATIENT
  Age: 70 Year
  Sex: Female

DRUGS (2)
  1. LEQEMBI [Suspect]
     Active Substance: LECANEMAB-IRMB
     Indication: Cognitive disorder
     Route: 042
     Dates: start: 20240910
  2. LEQEMBI [Suspect]
     Active Substance: LECANEMAB-IRMB
     Route: 042
     Dates: start: 20241111, end: 20241111

REACTIONS (1)
  - Cerebral infarction [Recovered/Resolved]

NARRATIVE: CASE EVENT DATE: 20241125
